FAERS Safety Report 8207509-3 (Version None)
Quarter: 2012Q1

REPORT INFORMATION
  Report Type: 
  Country: None (occurrence: None)
  Receive Date: 20120227
  Receipt Date: 20111107
  Transmission Date: 20120608
  Serious: No
  Sender: FDA-Public Use
  Company Number: 339208

PATIENT
  Age: 63 Year
  Sex: Female

DRUGS (2)
  1. CRESTOR [Concomitant]
  2. VICTOZA [Suspect]
     Indication: TYPE 2 DIABETES MELLITUS
     Dosage: 0.6 MG, QD, SUBCUTANEOUS ; 0.9 MG, SUBCUTANEOUS
     Route: 058
     Dates: start: 20111106

REACTIONS (1)
  - MYALGIA [None]
